FAERS Safety Report 16250335 (Version 2)
Quarter: 2019Q2

REPORT INFORMATION
  Report Type: Report from Study
  Country: US (occurrence: US)
  Receive Date: 20190429
  Receipt Date: 20190506
  Transmission Date: 20190711
  Serious: Yes (Hospitalization, Other)
  Sender: FDA-Public Use
  Company Number: US-MYLANLABS-2019M1041042

PATIENT
  Age: 61 Year
  Sex: Female
  Weight: 100.22 kg

DRUGS (20)
  1. RUBRACA [Suspect]
     Active Substance: RUCAPARIB CAMSYLATE
     Indication: OVARIAN CANCER
     Dosage: 600 MILLIGRAM, BID
     Route: 048
     Dates: start: 20180911
  2. FEMARA [Concomitant]
     Active Substance: LETROZOLE
  3. ULTRAM [Concomitant]
     Active Substance: TRAMADOL HYDROCHLORIDE
  4. LETROZOLE. [Suspect]
     Active Substance: LETROZOLE
     Indication: PRODUCT USED FOR UNKNOWN INDICATION
     Dosage: UNK
  5. RUBRACA [Suspect]
     Active Substance: RUCAPARIB CAMSYLATE
     Indication: BREAST CANCER FEMALE
     Dosage: 600 MILLIGRAM, BID
     Route: 048
     Dates: start: 20180814
  6. XANAX [Concomitant]
     Active Substance: ALPRAZOLAM
     Dosage: UNK
  7. FIORICET [Concomitant]
     Active Substance: ACETAMINOPHEN\BUTALBITAL\CAFFEINE
  8. VITAMIN D2 [Concomitant]
     Active Substance: ERGOCALCIFEROL
  9. NEURONTIN [Concomitant]
     Active Substance: GABAPENTIN
  10. TRULICITY [Concomitant]
     Active Substance: DULAGLUTIDE
  11. METFORMIN [Concomitant]
     Active Substance: METFORMIN HYDROCHLORIDE
     Dosage: UNK
  12. FLEXERIL [Concomitant]
     Active Substance: CYCLOBENZAPRINE HYDROCHLORIDE
  13. EPINEPHRINE HCL [Concomitant]
     Active Substance: EPINEPHRINE
  14. FOLVITE [Concomitant]
     Active Substance: FOLIC ACID
  15. EXEMESTANE. [Concomitant]
     Active Substance: EXEMESTANE
     Dosage: UNK
  16. HYDRODIURIL [Concomitant]
     Active Substance: HYDROCHLOROTHIAZIDE
  17. ZOFRAN [Concomitant]
     Active Substance: ONDANSETRON HYDROCHLORIDE
  18. RUBRACA [Suspect]
     Active Substance: RUCAPARIB CAMSYLATE
     Indication: OESTROGEN RECEPTOR ASSAY NEGATIVE
     Dosage: 600 MILLIGRAM, BID
     Route: 048
     Dates: start: 20180804
  19. RUBRACA [Suspect]
     Active Substance: RUCAPARIB CAMSYLATE
     Indication: BRCA1 GENE MUTATION
     Dosage: UNK
     Route: 065
     Dates: start: 20180725
  20. NORVASC [Concomitant]
     Active Substance: AMLODIPINE BESYLATE
     Dosage: UNK

REACTIONS (22)
  - Ketoacidosis [Recovered/Resolved]
  - Joint swelling [Unknown]
  - Fatigue [Unknown]
  - Hernia [Unknown]
  - Blood glucose increased [Unknown]
  - Muscle spasms [Unknown]
  - Dysphonia [Unknown]
  - Asthenia [Unknown]
  - Cough [Unknown]
  - Peripheral swelling [Unknown]
  - Bronchitis [Unknown]
  - Bone pain [Unknown]
  - Arthralgia [Not Recovered/Not Resolved]
  - Sinusitis [Unknown]
  - Dyspnoea [Recovering/Resolving]
  - Pharyngitis streptococcal [Recovered/Resolved]
  - Asthma [Recovered/Resolved]
  - Nasopharyngitis [Unknown]
  - Pain [Unknown]
  - Dysgeusia [Not Recovered/Not Resolved]
  - Thirst [Unknown]
  - Nausea [Unknown]

NARRATIVE: CASE EVENT DATE: 2018
